FAERS Safety Report 8648933 (Version 4)
Quarter: 2012Q4

REPORT INFORMATION
  Report Type: Report from Study
  Country: PH (occurrence: PH)
  Receive Date: 20120704
  Receipt Date: 20121024
  Transmission Date: 20130627
  Serious: Yes (Other)
  Sender: FDA-Public Use
  Company Number: PH-AMGEN-PHLCT2012034825

PATIENT
  Age: 56 Year
  Sex: Female
  Weight: 64.6 kg

DRUGS (6)
  1. DENOSUMAB [Suspect]
     Indication: BREAST CANCER
     Dosage: UNK
     Route: 058
     Dates: start: 20110824
  2. DOXORUBICIN [Concomitant]
     Dosage: 60 mg, UNK
     Dates: start: 20110823, end: 20120103
  3. CYCLOPHOSPHAMIDE [Concomitant]
     Dosage: 600 mg, UNK
     Dates: start: 20110823, end: 20120103
  4. FLUOROURACIL [Concomitant]
     Dosage: 600 mg, UNK
     Dates: start: 20110823, end: 20120103
  5. CALVIT [Concomitant]
     Dosage: UNK
     Route: 048
     Dates: start: 20110825
  6. MULTIVITAMINS [Concomitant]
     Dosage: UNK
     Route: 048
     Dates: start: 20110824

REACTIONS (1)
  - Thrombocytopenia [Recovered/Resolved]
